FAERS Safety Report 20381898 (Version 1)
Quarter: 2022Q1

REPORT INFORMATION
  Report Type: Report from Study
  Country: US (occurrence: US)
  Receive Date: 20220127
  Receipt Date: 20220127
  Transmission Date: 20220424
  Serious: Yes (Other)
  Sender: FDA-Public Use
  Company Number: US-ASTELLAS-2022US002631

PATIENT

DRUGS (12)
  1. TACROLIMUS [Suspect]
     Active Substance: TACROLIMUS
     Indication: Renal transplant
     Dosage: 0.5 MG/KG, EVERY 12 HOURS (BETWEEN POD 1 AND 3)
     Route: 065
  2. TACROLIMUS [Suspect]
     Active Substance: TACROLIMUS
     Dosage: UNK, UNKNOWN FREQ. (DOSE LOWERED)
     Route: 065
  3. MYCOPHENOLATE MOFETIL [Concomitant]
     Active Substance: MYCOPHENOLATE MOFETIL
     Indication: Renal transplant
     Dosage: 300-450 MG/M2/DOSE, EVERY 12 HOURS (POD 0 1?4 WEEKS)
     Route: 065
  4. MYCOPHENOLATE MOFETIL [Concomitant]
     Active Substance: MYCOPHENOLATE MOFETIL
     Dosage: 600-900 MG/M2 ONCE DAILY (4-8 WEEKS)
     Route: 065
  5. MYCOPHENOLATE MOFETIL [Concomitant]
     Active Substance: MYCOPHENOLATE MOFETIL
     Dosage: 600-900 MG/M2 ONCE DAILY (WEEKS)
     Route: 065
  6. MYCOPHENOLATE MOFETIL [Concomitant]
     Active Substance: MYCOPHENOLATE MOFETIL
     Dosage: 600-900 MG/M2 ONCE DAILY (13-16 WEEKS)
     Route: 065
  7. MYCOPHENOLATE MOFETIL [Concomitant]
     Active Substance: MYCOPHENOLATE MOFETIL
     Dosage: 600-900 MG/M2 ONCE DAILY ( }16 WEEKS)
     Route: 065
  8. PREDNISONE [Concomitant]
     Active Substance: PREDNISONE
     Indication: Renal transplant
     Dosage: 0.5 MG/KG (35 MG), ONCE DAILY ON POD 5
     Route: 048
  9. PREDNISONE [Concomitant]
     Active Substance: PREDNISONE
     Dosage: 0.4 MG/KG (25 MG), ONCE DAILY ON 4-8 WEEKS
     Route: 048
  10. PREDNISONE [Concomitant]
     Active Substance: PREDNISONE
     Dosage: 0.3 MG/KG (15 MG), ONCE DAILY ON WEEKS
     Route: 048
  11. PREDNISONE [Concomitant]
     Active Substance: PREDNISONE
     Dosage: 0.2 MG/KG (10 MG), ON 13-16 WEEKS ONCE DAILY
     Route: 048
  12. PREDNISONE [Concomitant]
     Active Substance: PREDNISONE
     Dosage: 0.1 MG/KG (35 MG), ONCE DAILY ON } 16 WEEKS
     Route: 048

REACTIONS (2)
  - Toxicity to various agents [Unknown]
  - Chronic allograft nephropathy [Unknown]
